FAERS Safety Report 9156168 (Version 1)
Quarter: 2013Q1

REPORT INFORMATION
  Report Type: Spontaneous
  Country: CA (occurrence: CA)
  Receive Date: 20130220
  Receipt Date: 20130220
  Transmission Date: 20140127
  Serious: Yes (Other)
  Sender: FDA-Public Use
  Company Number: PHHY2012CA127383

PATIENT
  Sex: Female

DRUGS (4)
  1. ACLASTA [Suspect]
     Indication: OSTEOPOROSIS
     Dosage: UNK UKN, UNK
     Dates: start: 20100301
  2. ACLASTA [Suspect]
     Dosage: UNK
     Dates: start: 20110302
  3. WARFARIN [Concomitant]
     Dosage: UNK UKN, UNK
     Dates: end: 201112
  4. PLAVIX [Concomitant]
     Dosage: UNK UKN, UNK

REACTIONS (1)
  - Myocardial infarction [Unknown]
